FAERS Safety Report 20189192 (Version 2)
Quarter: 2022Q1

REPORT INFORMATION
  Report Type: Other
  Country: US (occurrence: None)
  Receive Date: 20211215
  Receipt Date: 20220221
  Transmission Date: 20220423
  Serious: Yes (Other)
  Sender: FDA-Public Use
  Company Number: US-ROCHE-2974125

PATIENT

DRUGS (1)
  1. RITUXIMAB [Suspect]
     Active Substance: RITUXIMAB
     Indication: Myasthenia gravis
     Route: 041

REACTIONS (7)
  - Myasthenia gravis [Unknown]
  - Pulmonary embolism [Unknown]
  - Leukopenia [Unknown]
  - Hypersensitivity [Unknown]
  - Diverticulitis [Unknown]
  - Platelet count decreased [Unknown]
  - Hypotension [Unknown]
